FAERS Safety Report 14499767 (Version 1)
Quarter: 2018Q1

REPORT INFORMATION
  Report Type: Spontaneous
  Country: US (occurrence: US)
  Receive Date: 20180207
  Receipt Date: 20180207
  Transmission Date: 20180509
  Serious: Yes (Other)
  Sender: FDA-Public Use
  Company Number: US-GLAXOSMITHKLINE-US2018GSK018434

PATIENT
  Sex: Female

DRUGS (1)
  1. INCRUSE ELLIPTA [Suspect]
     Active Substance: UMECLIDINIUM BROMIDE
     Indication: MYCOBACTERIUM AVIUM COMPLEX INFECTION
     Dosage: 1 PUFF(S), QD
     Route: 055
     Dates: start: 201710, end: 20180130

REACTIONS (5)
  - Condition aggravated [Unknown]
  - Visual impairment [Unknown]
  - Photopsia [Unknown]
  - Glaucoma [Unknown]
  - Vision blurred [Unknown]
